FAERS Safety Report 10891364 (Version 1)
Quarter: 2015Q1

REPORT INFORMATION
  Report Type: Spontaneous
  Country: JP (occurrence: JP)
  Receive Date: 20150306
  Receipt Date: 20150306
  Transmission Date: 20150721
  Serious: Yes (Hospitalization)
  Sender: FDA-Public Use
  Company Number: JP-ROCHE-1538614

PATIENT
  Age: 86 Year
  Sex: Female
  Weight: 41 kg

DRUGS (2)
  1. AVASTIN [Suspect]
     Active Substance: BEVACIZUMAB
     Indication: MALIGNANT GLIOMA
     Dosage: MOST RECENT DOSE: 06/FEB/2015
     Route: 041
     Dates: start: 20150130
  2. AVASTIN [Suspect]
     Active Substance: BEVACIZUMAB
     Indication: GLIOBLASTOMA

REACTIONS (2)
  - Cerebral ventricular rupture [Recovering/Resolving]
  - Intracranial tumour haemorrhage [Recovering/Resolving]

NARRATIVE: CASE EVENT DATE: 20150206
